FAERS Safety Report 20802384 (Version 1)
Quarter: 2022Q2

REPORT INFORMATION
  Report Type: Spontaneous
  Country: US (occurrence: None)
  Receive Date: 20220506
  Receipt Date: 20220506
  Transmission Date: 20220720
  Serious: Yes (Other)
  Sender: FDA-Public Use
  Company Number: None

PATIENT
  Age: 36 Year
  Sex: Female
  Weight: 62.55 kg

DRUGS (1)
  1. VENOFER [Suspect]
     Active Substance: IRON SUCROSE
     Indication: Iron deficiency anaemia
     Dosage: FREQUENCY : WEEKLY;?
     Route: 041
     Dates: start: 20220506, end: 20220506

REACTIONS (6)
  - Chest pain [None]
  - Dyspnoea [None]
  - Pruritus [None]
  - Hypertension [None]
  - Urticaria [None]
  - Purpura [None]

NARRATIVE: CASE EVENT DATE: 20220506
